FAERS Safety Report 18040274 (Version 6)
Quarter: 2022Q1

REPORT INFORMATION
  Report Type: Report from Study
  Country: BR (occurrence: BR)
  Receive Date: 20200717
  Receipt Date: 20220316
  Transmission Date: 20220423
  Serious: Yes (Other)
  Sender: FDA-Public Use
  Company Number: BR-NOVARTISPH-NVSC2020BR201246

PATIENT
  Age: 41 Year
  Sex: Male
  Weight: 74 kg

DRUGS (10)
  1. COSENTYX [Suspect]
     Active Substance: SECUKINUMAB
     Indication: Ankylosing spondylitis
     Dosage: 150 MG
     Route: 065
     Dates: start: 202005, end: 202101
  2. COSENTYX [Suspect]
     Active Substance: SECUKINUMAB
     Dosage: 150 MG
     Route: 065
     Dates: start: 20200512
  3. COSENTYX [Suspect]
     Active Substance: SECUKINUMAB
     Dosage: UNK, QMO 2 AMPOULES
     Route: 058
     Dates: start: 202101
  4. COSENTYX [Suspect]
     Active Substance: SECUKINUMAB
     Dosage: UNK, 1 AMPOULE
     Route: 065
     Dates: start: 20210512
  5. COSENTYX [Suspect]
     Active Substance: SECUKINUMAB
     Dosage: UNK
     Route: 065
     Dates: start: 20211215
  6. COSENTYX [Suspect]
     Active Substance: SECUKINUMAB
     Dosage: 300 MG, QMO
     Route: 065
     Dates: start: 2021
  7. COSENTYX [Suspect]
     Active Substance: SECUKINUMAB
     Dosage: ONE 150MG PEN, STOPPED DATE JUL OR AUG 2021
     Route: 058
     Dates: start: 20200521
  8. COSENTYX [Suspect]
     Active Substance: SECUKINUMAB
     Dosage: STAR DATE OF JUL OR AUG 2021, TWO 150 MG PENS
     Route: 058
  9. LOSARTAN [Suspect]
     Active Substance: LOSARTAN
     Indication: Hypertension
     Dosage: 5 MG
     Route: 065
     Dates: start: 202004
  10. LOSARTAN [Suspect]
     Active Substance: LOSARTAN
     Dosage: ONE TABLET (THINKS IT IS 0.5MG) A YEAR AGO
     Route: 048

REACTIONS (8)
  - Arthralgia [Not Recovered/Not Resolved]
  - Pain in extremity [Not Recovered/Not Resolved]
  - Therapeutic product effect decreased [Not Recovered/Not Resolved]
  - Asymptomatic COVID-19 [Recovering/Resolving]
  - Influenza [Recovering/Resolving]
  - Malaise [Recovering/Resolving]
  - Pain [Unknown]
  - Hypertension [Not Recovered/Not Resolved]

NARRATIVE: CASE EVENT DATE: 20200703
